FAERS Safety Report 7952388-2 (Version None)
Quarter: 2011Q4

REPORT INFORMATION
  Report Type: 
  Country: None (occurrence: None)
  Receive Date: 20111201
  Receipt Date: 20111122
  Transmission Date: 20120403
  Serious: Yes (Hospitalization)
  Sender: FDA-Public Use
  Company Number: US-GLAXOSMITHKLINE-A0775089A

PATIENT
  Sex: Female

DRUGS (3)
  1. AVANDARYL [Suspect]
     Indication: DIABETES MELLITUS
     Dosage: 1TAB TWICE PER DAY
     Dates: start: 20041202
  2. AVANDAMET [Suspect]
     Indication: DIABETES MELLITUS
     Dates: end: 20070101
  3. AVANDIA [Suspect]
     Indication: DIABETES MELLITUS
     Dosage: 4MG PER DAY
     Route: 048

REACTIONS (2)
  - CORONARY ARTERY OCCLUSION [None]
  - CARDIAC FAILURE CONGESTIVE [None]
